FAERS Safety Report 4673354-9 (Version None)
Quarter: 2005Q2

REPORT INFORMATION
  Report Type: 
  Country: None (occurrence: None)
  Receive Date: 20050524
  Receipt Date: 20050524
  Transmission Date: 20051028
  Serious: Yes (Hospitalization)
  Sender: FDA-Public Use
  Company Number: None

PATIENT
  Age: 53 Year
  Sex: Male
  Weight: 124.5 kg

DRUGS (15)
  1. WARFARIN 5 MG TAB [Suspect]
     Indication: PULMONARY HYPERTENSION
     Dosage: 5 MG PO QD BUT MED 2.5 MG
     Route: 048
     Dates: start: 20021230
  2. DIPYRIDAMOLE [Suspect]
     Indication: PULMONARY ARTERY DILATATION
     Dosage: FOUR TIMES DAILY
     Dates: start: 20021212
  3. OMEPRAZOLE [Concomitant]
  4. KU-ZYME [Concomitant]
  5. SILDENAFIL CITRATE [Concomitant]
  6. UREA 20% CREAM [Concomitant]
  7. DILTIAZEM [Concomitant]
  8. FOLIC ACID [Concomitant]
  9. FUROSEMIDE [Concomitant]
  10. TESTOSTERONE (ANDRODERM) [Concomitant]
  11. CALCITRIOL [Concomitant]
  12. SALICYLIC ACID 40% PLASTER [Concomitant]
  13. SALMETEROL [Concomitant]
  14. DIPYRIDAMOLE [Concomitant]
  15. CODEINE 30/ACETAMINOPHEN [Concomitant]

REACTIONS (6)
  - ABDOMINAL PAIN [None]
  - GASTROINTESTINAL HAEMORRHAGE [None]
  - HAEMATEMESIS [None]
  - HAEMATOCRIT DECREASED [None]
  - INJURY [None]
  - VOMITING [None]
